FAERS Safety Report 23569250 (Version 2)
Quarter: 2024Q2

REPORT INFORMATION
  Report Type: Report from Study
  Country: US (occurrence: US)
  Receive Date: 20240227
  Receipt Date: 20240422
  Transmission Date: 20240716
  Serious: Yes (Other)
  Sender: FDA-Public Use
  Company Number: US-ABBVIE-5566724

PATIENT
  Sex: Female

DRUGS (2)
  1. HUMIRA [Suspect]
     Active Substance: ADALIMUMAB
     Indication: Rheumatoid arthritis
     Dosage: FORM STRENGTH: 40MG, CITRATE FREE
     Route: 058
     Dates: start: 20200723, end: 202401
  2. HUMIRA [Suspect]
     Active Substance: ADALIMUMAB
     Dosage: LAST ADMIN DATE : 2024?FORM STRENGTH: 40MG, CITRATE FREE
     Route: 058
     Dates: start: 20240223

REACTIONS (4)
  - Arthralgia [Unknown]
  - Pain [Unknown]
  - Dysstasia [Unknown]
  - Facial pain [Not Recovered/Not Resolved]
